FAERS Safety Report 9096899 (Version 5)
Quarter: 2013Q2

REPORT INFORMATION
  Report Type: Spontaneous
  Country: JP (occurrence: JP)
  Receive Date: 20130211
  Receipt Date: 20130418
  Transmission Date: 20140414
  Serious: Yes (Life-Threatening, Hospitalization)
  Sender: FDA-Public Use
  Company Number: JP-AMGEN-JPNSP2013008911

PATIENT
  Age: 69 Year
  Sex: Male
  Weight: 66 kg

DRUGS (17)
  1. VECTIBIX [Suspect]
     Indication: COLON CANCER RECURRENT
     Dosage: 400 MG, Q2WK
     Route: 041
     Dates: start: 20121113, end: 20130108
  2. TAKEPRON [Concomitant]
     Dosage: UNK
     Route: 048
  3. OXINORM                            /00045603/ [Concomitant]
     Dosage: UNK
     Route: 048
  4. NAIXAN                             /00256201/ [Concomitant]
     Dosage: UNK
     Route: 048
  5. BI SIFROL [Concomitant]
     Dosage: UNK
     Route: 048
  6. PRIMPERAN [Concomitant]
     Dosage: UNK
     Route: 065
  7. LOXONIN [Concomitant]
     Dosage: UNK
     Route: 065
  8. XYZAL [Concomitant]
     Dosage: UNK
     Route: 048
  9. FENTOS [Concomitant]
     Dosage: UNK
     Route: 062
  10. HARNAL [Concomitant]
     Dosage: UNK
     Route: 048
  11. COCARL [Concomitant]
     Dosage: UNK
     Route: 048
  12. MUCOSTA [Concomitant]
     Dosage: UNK
     Route: 065
  13. MAGNESIUM OXIDE [Concomitant]
     Dosage: UNK
     Route: 048
  14. HIRUDOID                           /00723702/ [Concomitant]
     Dosage: UNK
     Route: 062
  15. RINDERON-V [Concomitant]
     Dosage: UNK
     Route: 062
  16. TERRA CORTRIL                      /00256101/ [Concomitant]
     Dosage: UNK
     Route: 062
  17. RINDERON-VG [Concomitant]
     Dosage: UNK
     Route: 062

REACTIONS (3)
  - Interstitial lung disease [Recovering/Resolving]
  - Haematuria [Unknown]
  - Dizziness [Unknown]
